FAERS Safety Report 5319713-2 (Version None)
Quarter: 2007Q2

REPORT INFORMATION
  Report Type: 
  Country: None (occurrence: None)
  Receive Date: 20070503
  Receipt Date: 20070420
  Transmission Date: 20071010
  Serious: Yes (Hospitalization)
  Sender: FDA-Public Use
  Company Number: 155666ISR

PATIENT
  Age: 62 Year
  Sex: Female

DRUGS (5)
  1. VINCRISTINE [Suspect]
  2. RITUXIMAB [Suspect]
  3. CYCLOPHOSPHAMIDE [Suspect]
  4. DOXORUBICIN HCL [Concomitant]
  5. PREDNISONE TAB [Concomitant]

REACTIONS (6)
  - CEREBRAL DISORDER [None]
  - CEREBROVASCULAR DISORDER [None]
  - CONVULSION [None]
  - ENDOTHELIAL DYSFUNCTION [None]
  - REVERSIBLE POSTERIOR LEUKOENCEPHALOPATHY SYNDROME [None]
  - SOPOR [None]
